FAERS Safety Report 7487555-8 (Version None)
Quarter: 2011Q2

REPORT INFORMATION
  Report Type: 
  Country: None (occurrence: None)
  Receive Date: 20110518
  Receipt Date: 20110512
  Transmission Date: 20111010
  Serious: Yes (Hospitalization, Other)
  Sender: FDA-Public Use
  Company Number: IT-BRISTOL-MYERS SQUIBB COMPANY-15738339

PATIENT
  Age: 88 Year
  Sex: Female

DRUGS (6)
  1. LANOXIN [Concomitant]
  2. OMEPRAZOLE [Concomitant]
  3. CORDARONE [Concomitant]
     Dosage: 200MG IS THE STRENGTH.(TABS) 1DF=1 UNITS
  4. COUMADIN [Suspect]
     Indication: ATRIAL FIBRILLATION
     Dosage: 1DF=1 UNIT TOOK 1 TAB INSTEAD OF 1/4 TAB DURING THE LAST 2 WEEKS
     Route: 048
     Dates: start: 20080101, end: 20110203
  5. LASIX [Concomitant]
     Dosage: 25MG IS THE STRENGTH. 1DF=2 UNITS
  6. CO-EFFERALGAN [Concomitant]

REACTIONS (3)
  - ANAEMIA [None]
  - DRUG ADMINISTRATION ERROR [None]
  - GASTRIC HAEMORRHAGE [None]
